FAERS Safety Report 25263597 (Version 1)
Quarter: 2025Q2

REPORT INFORMATION
  Report Type: Spontaneous
  Country: JP (occurrence: JP)
  Receive Date: 20250502
  Receipt Date: 20250502
  Transmission Date: 20250717
  Serious: Yes (Hospitalization)
  Sender: PFIZER
  Company Number: JP-PFIZER INC-PV202500009624

PATIENT
  Age: 91 Year
  Sex: Female
  Weight: 40 kg

DRUGS (3)
  1. ELREXFIO [Suspect]
     Active Substance: ELRANATAMAB-BCMM
     Indication: Plasma cell myeloma refractory
     Route: 058
     Dates: start: 202408
  2. ELREXFIO [Suspect]
     Active Substance: ELRANATAMAB-BCMM
     Route: 058
     Dates: start: 2024
  3. ELREXFIO [Suspect]
     Active Substance: ELRANATAMAB-BCMM
     Route: 058
     Dates: start: 2024

REACTIONS (4)
  - Cytomegalovirus infection [Recovered/Resolved]
  - Diarrhoea [Recovered/Resolved]
  - Performance status decreased [Recovered/Resolved]
  - Physical deconditioning [Unknown]
